FAERS Safety Report 9419022 (Version 2)
Quarter: 2013Q3

REPORT INFORMATION
  Report Type: Spontaneous
  Country: DE (occurrence: DE)
  Receive Date: 20130725
  Receipt Date: 20130926
  Transmission Date: 20140515
  Serious: Yes (Other)
  Sender: FDA-Public Use
  Company Number: PHHY2013DE077833

PATIENT
  Sex: Male
  Weight: 92 kg

DRUGS (4)
  1. EXJADE [Suspect]
     Indication: MYELODYSPLASTIC SYNDROME
     Dosage: 3 G, DAILY
     Dates: start: 200606
  2. EXJADE [Suspect]
     Dosage: 1.5 G, DAILY
  3. NEXIAM [Concomitant]
     Indication: GASTRITIS
     Dosage: 40 MG, DAILY
     Dates: start: 2004
  4. ACETYLSALICYLIC ACID [Concomitant]
     Dosage: 100 MG, DAILY

REACTIONS (5)
  - Ventricular hypertrophy [Not Recovered/Not Resolved]
  - Cardiac hypertrophy [Not Recovered/Not Resolved]
  - Vein disorder [Not Recovered/Not Resolved]
  - Diabetes mellitus [Recovering/Resolving]
  - Hypertension [Recovering/Resolving]
